FAERS Safety Report 5602296-7 (Version None)
Quarter: 2008Q1

REPORT INFORMATION
  Report Type: 
  Country: None (occurrence: None)
  Receive Date: 20080125
  Receipt Date: 20080118
  Transmission Date: 20080703
  Serious: Yes (Death)
  Sender: FDA-Public Use
  Company Number: US-AVENTIS-200810312US

PATIENT
  Sex: Male

DRUGS (3)
  1. LANTUS [Suspect]
     Dosage: DOSE: UNK
     Route: 051
  2. BACTROBAN [Concomitant]
     Dosage: DOSE: UNK
     Dates: start: 20071231
  3. DARVOCET-N 100 [Concomitant]
     Dosage: DOSE: UNK
     Dates: start: 20071231

REACTIONS (5)
  - BLOOD GLUCOSE DECREASED [None]
  - BRAIN OEDEMA [None]
  - DRUG ADMINISTRATION ERROR [None]
  - HYPOGLYCAEMIA [None]
  - OVERDOSE [None]
